FAERS Safety Report 7625114-4 (Version None)
Quarter: 2011Q3

REPORT INFORMATION
  Report Type: 
  Country: None (occurrence: None)
  Receive Date: 20110721
  Receipt Date: 20110713
  Transmission Date: 20111222
  Serious: No
  Sender: FDA-Public Use
  Company Number: US-BIOGENIDEC-2011BI026519

PATIENT
  Sex: Female

DRUGS (2)
  1. TYSABRI [Suspect]
     Indication: MULTIPLE SCLEROSIS
     Route: 042
     Dates: start: 20070821
  2. BACLOFEN [Concomitant]
     Indication: MUSCLE SPASMS

REACTIONS (6)
  - OVERDOSE [None]
  - MUSCLE SPASMS [None]
  - FOOT DEFORMITY [None]
  - NERVE INJURY [None]
  - PAIN IN EXTREMITY [None]
  - POST PROCEDURAL COMPLICATION [None]
